FAERS Safety Report 16048086 (Version 2)
Quarter: 2019Q2

REPORT INFORMATION
  Report Type: Spontaneous
  Country: US (occurrence: US)
  Receive Date: 20190307
  Receipt Date: 20190424
  Transmission Date: 20190711
  Serious: No
  Sender: FDA-Public Use
  Company Number: US-GLAXOSMITHKLINE-US2019040218

PATIENT
  Sex: Male
  Weight: 41.27 kg

DRUGS (1)
  1. ADVAIR DISKUS [Suspect]
     Active Substance: FLUTICASONE PROPIONATE\SALMETEROL XINAFOATE
     Indication: COUGH
     Dosage: UNK
     Route: 055
     Dates: start: 20190226, end: 20190308

REACTIONS (2)
  - Wrong technique in device usage process [Unknown]
  - Product dose omission [Unknown]
